FAERS Safety Report 18567420 (Version 1)
Quarter: 2020Q4

REPORT INFORMATION
  Report Type: Report from Study
  Country: None (occurrence: ES)
  Receive Date: 20201201
  Receipt Date: 20201201
  Transmission Date: 20210114
  Serious: Yes (Hospitalization)
  Sender: FDA-Public Use
  Company Number: ES-ABBVIE-20K-144-3669426-00

PATIENT
  Sex: Female

DRUGS (2)
  1. DUODOPA [Suspect]
     Active Substance: CARBIDOPA\LEVODOPA
     Indication: PRODUCT USED FOR UNKNOWN INDICATION
     Dosage: MORNING DOSE 6.5 ML, CONTINUOUS DOSE 4 ML, EXTRA DOSE 2 ML
     Route: 050
     Dates: end: 202011
  2. DUODOPA [Suspect]
     Active Substance: CARBIDOPA\LEVODOPA
     Dosage: MORNING DOSE 7.5 ML, CONTINUOUS DOSE 5 ML, EXTRA DOSE 2 ML
     Route: 050
     Dates: start: 202011

REACTIONS (3)
  - COVID-19 [Unknown]
  - Unevaluable event [Unknown]
  - Drug interaction [Unknown]

NARRATIVE: CASE EVENT DATE: 2020
